FAERS Safety Report 11622823 (Version 1)
Quarter: 2015Q4

REPORT INFORMATION
  Report Type: Spontaneous
  Country: US (occurrence: None)
  Receive Date: 20151009
  Receipt Date: 20151009
  Transmission Date: 20160304
  Serious: Yes (Disabling, Other)
  Sender: FDA-Public Use
  Company Number: None

PATIENT
  Age: 62 Year
  Sex: Female
  Weight: 56.7 kg

DRUGS (10)
  1. PROLIA [Suspect]
     Active Substance: DENOSUMAB
     Indication: OSTEOPOROSIS
     Dosage: 2 SHOTS/YR GIVEN INTO/UNDER THE SKIN
     Route: 058
  2. LUTEIN [Concomitant]
     Active Substance: LUTEIN
  3. MULTI-VITAMIN [Concomitant]
     Active Substance: .ALPHA.-TOCOPHEROL ACETATE, DL-\ASCORBIC ACID\CYANOCOBALAMIN\FLUORIDE ION\FOLIC ACID\NIACIN\PYRIDOXINE\RIBOFLAVIN\THIAMINE\VITAMIN A\VITAMIN D
  4. VITAMIN D [Concomitant]
     Active Substance: CHOLECALCIFEROL
  5. NIACIN. [Concomitant]
     Active Substance: NIACIN
  6. FISH OIL [Concomitant]
     Active Substance: FISH OIL
  7. VITAMIN B12 [Concomitant]
     Active Substance: CYANOCOBALAMIN
  8. CAL-MAG-ZINC [Concomitant]
  9. HYALURONIC ACID [Concomitant]
     Active Substance: HYALURONIC ACID
  10. BIOTIN [Concomitant]
     Active Substance: BIOTIN

REACTIONS (12)
  - Pain [None]
  - Pollakiuria [None]
  - Urine abnormality [None]
  - Pain in extremity [None]
  - Arthralgia [None]
  - Body temperature decreased [None]
  - Balance disorder [None]
  - Headache [None]
  - Asthenia [None]
  - Blood glucose abnormal [None]
  - Blood pressure decreased [None]
  - Back pain [None]
